FAERS Safety Report 25656199 (Version 2)
Quarter: 2025Q3

REPORT INFORMATION
  Report Type: Spontaneous
  Country: US (occurrence: US)
  Receive Date: 20250807
  Receipt Date: 20250808
  Transmission Date: 20251021
  Serious: No
  Sender: BIOMARIN
  Company Number: US-BIOMARINAP-US-2025-167893

PATIENT
  Age: 5 Year
  Sex: Male
  Weight: 22.1 kg

DRUGS (1)
  1. VOXZOGO [Suspect]
     Active Substance: VOSORITIDE
     Indication: Osteochondrodysplasia
     Dosage: 0.28 MILLIGRAM, QD
     Dates: start: 202502

REACTIONS (3)
  - Scoliosis [Not Recovered/Not Resolved]
  - Back pain [Not Recovered/Not Resolved]
  - Kyphosis [Not Recovered/Not Resolved]
